FAERS Safety Report 7516975-8 (Version None)
Quarter: 2011Q2

REPORT INFORMATION
  Report Type: 
  Country: None (occurrence: None)
  Receive Date: 20110502
  Receipt Date: 20110211
  Transmission Date: 20111010
  Serious: Yes (Other)
  Sender: FDA-Public Use
  Company Number: AMAG201100026

PATIENT
  Age: 55 Year
  Sex: Male
  Weight: 77.1 kg

DRUGS (6)
  1. HYDROCODONE BITARTRATE [Concomitant]
  2. COUMADIN [Concomitant]
  3. XELODA [Concomitant]
  4. ZOFRAN [Concomitant]
  5. OCEAN NASAL SPRAY NASAL DROP [Concomitant]
  6. FERAHEME [Suspect]
     Indication: IRON DEFICIENCY ANAEMIA
     Dosage: 510 MG, SINGLE, INTRAVENOUS
     Route: 042
     Dates: start: 20110204, end: 20110204

REACTIONS (8)
  - HYPERHIDROSIS [None]
  - BACK PAIN [None]
  - HYPOTENSION [None]
  - THROAT TIGHTNESS [None]
  - CHEST DISCOMFORT [None]
  - DYSPNOEA [None]
  - HYPERSENSITIVITY [None]
  - FLUSHING [None]
